FAERS Safety Report 13030126 (Version 2)
Quarter: 2017Q1

REPORT INFORMATION
  Report Type: Spontaneous
  Country: US (occurrence: US)
  Receive Date: 20161215
  Receipt Date: 20170130
  Transmission Date: 20170428
  Serious: No
  Sender: FDA-Public Use
  Company Number: US-VERTEX PHARMACEUTICALS-2016-006997

PATIENT
  Age: 18 Year
  Sex: Male

DRUGS (7)
  1. KALYDECO [Suspect]
     Active Substance: IVACAFTOR
     Dosage: 150 MG, BID
     Route: 048
  2. SODIUM CHLORIDE. [Concomitant]
     Active Substance: SODIUM CHLORIDE
  3. KALYDECO [Suspect]
     Active Substance: IVACAFTOR
     Indication: CYSTIC FIBROSIS
     Dosage: 150 MG, BID
     Route: 048
     Dates: start: 20150803
  4. TOBI [Concomitant]
     Active Substance: TOBRAMYCIN
  5. DOXYCYCLINE. [Concomitant]
     Active Substance: DOXYCYCLINE
  6. LANTUS [Concomitant]
     Active Substance: INSULIN GLARGINE
  7. SINGULAIR [Concomitant]
     Active Substance: MONTELUKAST SODIUM

REACTIONS (1)
  - No adverse event [Not Recovered/Not Resolved]

NARRATIVE: CASE EVENT DATE: 201610
